FAERS Safety Report 24106817 (Version 2)
Quarter: 2024Q3

REPORT INFORMATION
  Report Type: Spontaneous
  Country: IL (occurrence: IL)
  Receive Date: 20240717
  Receipt Date: 20240819
  Transmission Date: 20241016
  Serious: Yes (Death, Hospitalization, Other)
  Sender: GILEAD
  Company Number: IL-GILEAD-2024-0667331

PATIENT
  Age: 74 Year
  Sex: Female
  Weight: 72 kg

DRUGS (5)
  1. YESCARTA [Suspect]
     Active Substance: AXICABTAGENE CILOLEUCEL
     Indication: Diffuse large B-cell lymphoma
     Dosage: UNK
     Route: 042
     Dates: start: 20240613, end: 20240613
  2. KEPPRA [Concomitant]
     Active Substance: LEVETIRACETAM
     Dosage: X 2 PER DAY 500
     Dates: start: 20240616
  3. KEPPRA [Concomitant]
     Active Substance: LEVETIRACETAM
     Dosage: X 2 PER DAY 1500
     Dates: start: 20240617
  4. LEVOTHYROXINE [Concomitant]
     Active Substance: LEVOTHYROXINE\LEVOTHYROXINE SODIUM
     Dosage: 100 MG, QD
  5. ATORVASTATIN CALCIUM [Concomitant]
     Active Substance: ATORVASTATIN CALCIUM
     Dosage: 40 MG, QD

REACTIONS (6)
  - Immune effector cell-associated neurotoxicity syndrome [Fatal]
  - Brain oedema [Unknown]
  - Hepatic failure [Unknown]
  - Renal failure [Unknown]
  - Neutropenia [Unknown]
  - Diarrhoea [Unknown]

NARRATIVE: CASE EVENT DATE: 20240614
